FAERS Safety Report 6911794-5 (Version None)
Quarter: 2010Q3

REPORT INFORMATION
  Report Type: 
  Country: None (occurrence: None)
  Receive Date: 20100806
  Receipt Date: 20070716
  Transmission Date: 20110219
  Serious: No
  Sender: FDA-Public Use
  Company Number: US-PFIZER INC-2007059789

PATIENT
  Sex: Female
  Weight: 72.57 kg

DRUGS (5)
  1. DETROL LA [Suspect]
     Route: 048
     Dates: start: 20070712, end: 20070713
  2. LEVAQUIN [Suspect]
     Dates: start: 20070712, end: 20070713
  3. OXYCET [Suspect]
     Dates: start: 20070712, end: 20070713
  4. PHENAZOPYRIDINE HCL TAB [Suspect]
     Dates: start: 20070712, end: 20070713
  5. DIOVANE [Concomitant]

REACTIONS (1)
  - VOMITING [None]
